APPROVED DRUG PRODUCT: BETAMETHASONE DIPROPIONATE
Active Ingredient: BETAMETHASONE DIPROPIONATE
Strength: EQ 0.05% BASE
Dosage Form/Route: LOTION;TOPICAL
Application: A070281 | Product #001
Applicant: ACTAVIS MID ATLANTIC LLC
Approved: Jul 31, 1985 | RLD: No | RS: No | Type: DISCN